FAERS Safety Report 6190940-8 (Version None)
Quarter: 2009Q2

REPORT INFORMATION
  Report Type: 
  Country: None (occurrence: None)
  Receive Date: 20090514
  Receipt Date: 20090507
  Transmission Date: 20091009
  Serious: Yes (Hospitalization, Other)
  Sender: FDA-Public Use
  Company Number: US-MERCK-0905USA01381

PATIENT
  Age: 63 Year
  Sex: Male

DRUGS (16)
  1. DECADRON [Suspect]
     Indication: MANTLE CELL LYMPHOMA
     Route: 048
     Dates: start: 20060301, end: 20060801
  2. ENDOXAN [Suspect]
     Indication: MANTLE CELL LYMPHOMA
     Route: 065
     Dates: start: 20060301, end: 20060801
  3. ONCOVIN [Suspect]
     Indication: MANTLE CELL LYMPHOMA
     Route: 042
     Dates: start: 20060301, end: 20060801
  4. DOXORUBICIN HYDROCHLORIDE [Suspect]
     Indication: MANTLE CELL LYMPHOMA
     Route: 042
     Dates: start: 20060301, end: 20060801
  5. METHOTREXATE [Suspect]
     Indication: MANTLE CELL LYMPHOMA
     Route: 065
     Dates: start: 20060301, end: 20060801
  6. METHOTREXATE [Suspect]
     Route: 065
     Dates: start: 20060919, end: 20060919
  7. CYTARABINE [Suspect]
     Indication: MANTLE CELL LYMPHOMA
     Route: 065
     Dates: start: 20060301, end: 20060801
  8. CYTARABINE [Suspect]
     Route: 065
     Dates: start: 20060919, end: 20060920
  9. RITUXAN [Suspect]
     Indication: MANTLE CELL LYMPHOMA
     Route: 042
     Dates: start: 20060301, end: 20060801
  10. RITUXAN [Suspect]
     Route: 042
     Dates: start: 20060919, end: 20060919
  11. METHYLPREDNISOLONE [Suspect]
     Indication: MANTLE CELL LYMPHOMA
     Route: 065
     Dates: start: 20060101, end: 20060101
  12. METHYLPREDNISOLONE [Suspect]
     Route: 065
     Dates: start: 20060919, end: 20060921
  13. PIPERACILLIN SODIUM [Concomitant]
     Route: 065
     Dates: start: 20060301, end: 20060301
  14. CARBENIN [Concomitant]
     Route: 042
     Dates: start: 20060301, end: 20060401
  15. CRAVIT [Concomitant]
     Indication: INFECTION PROPHYLAXIS
     Route: 048
     Dates: start: 20060501, end: 20060801
  16. MEROPEN [Concomitant]
     Indication: INFECTION PROPHYLAXIS
     Route: 042
     Dates: start: 20060904, end: 20060918

REACTIONS (5)
  - BONE MARROW FAILURE [None]
  - IMMUNOSUPPRESSION [None]
  - IMPAIRED HEALING [None]
  - OSTEOMYELITIS [None]
  - OSTEONECROSIS [None]
